FAERS Safety Report 20540503 (Version 2)
Quarter: 2022Q1

REPORT INFORMATION
  Report Type: Spontaneous
  Country: DE (occurrence: DE)
  Receive Date: 20220302
  Receipt Date: 20220315
  Transmission Date: 20220423
  Serious: Yes (Hospitalization, Other)
  Sender: FDA-Public Use
  Company Number: DE-SA-SAC20220228000057

PATIENT
  Age: 33 Year
  Sex: Female

DRUGS (5)
  1. DUPILUMAB [Suspect]
     Active Substance: DUPILUMAB
     Indication: Dermatitis atopic
     Dosage: 300 MG, QOW
     Route: 058
     Dates: start: 20180711
  2. BUPROPION [Concomitant]
     Active Substance: BUPROPION
     Indication: Depression
     Dosage: 150 MG, QD
     Route: 048
     Dates: start: 20211114, end: 20211214
  3. BUPROPION [Concomitant]
     Active Substance: BUPROPION
     Dosage: 300 MG, QD
     Route: 048
     Dates: start: 20211215, end: 20220107
  4. BUPROPION [Concomitant]
     Active Substance: BUPROPION
     Dosage: 150 MG, QD
     Route: 048
     Dates: start: 20220108, end: 20220115
  5. CETIRIZINE [Concomitant]
     Active Substance: CETIRIZINE HYDROCHLORIDE
     Indication: Dermatitis atopic
     Dosage: 1 DF, QD
     Route: 048
     Dates: start: 2016

REACTIONS (1)
  - Seizure [Recovered/Resolved]

NARRATIVE: CASE EVENT DATE: 20220101
